FAERS Safety Report 7445411-5 (Version None)
Quarter: 2011Q2

REPORT INFORMATION
  Report Type: 
  Country: None (occurrence: None)
  Receive Date: 20110429
  Receipt Date: 20110427
  Transmission Date: 20111010
  Serious: Yes (Death)
  Sender: FDA-Public Use
  Company Number: PHHY2011AR35648

PATIENT
  Sex: Male

DRUGS (1)
  1. EXELON [Suspect]
     Dosage: PATCH 10, ONE PATCH DAILY
     Route: 062

REACTIONS (1)
  - INFARCTION [None]
